FAERS Safety Report 7237553-4 (Version None)
Quarter: 2011Q1

REPORT INFORMATION
  Report Type: 
  Country: None (occurrence: None)
  Receive Date: 20110121
  Receipt Date: 20110111
  Transmission Date: 20110831
  Serious: Yes (Other)
  Sender: FDA-Public Use
  Company Number: US-JNJFOC-20090801729

PATIENT
  Age: 9 Year
  Sex: Female

DRUGS (2)
  1. IBUPROFEN [Suspect]
     Indication: HEADACHE
     Dosage: 10MG/KG/DOSE
     Route: 048
  2. IBUPROFEN [Suspect]
     Indication: PYREXIA
     Dosage: 10MG/KG/DOSE
     Route: 048

REACTIONS (8)
  - STEVENS-JOHNSON SYNDROME [None]
  - XANTHOMA [None]
  - HEPATIC CIRRHOSIS [None]
  - DECREASED APPETITE [None]
  - PANCREATITIS [None]
  - EYE PAIN [None]
  - HEPATOSPLENOMEGALY [None]
  - RASH MACULO-PAPULAR [None]
